FAERS Safety Report 4664118-0 (Version None)
Quarter: 2005Q2

REPORT INFORMATION
  Report Type: 
  Country: None (occurrence: None)
  Receive Date: 20050516
  Receipt Date: 20050516
  Transmission Date: 20051028
  Serious: Yes (Life-Threatening, Other)
  Sender: FDA-Public Use
  Company Number: None

PATIENT
  Age: 53 Year
  Sex: Male
  Weight: 90.7194 kg

DRUGS (5)
  1. GENERIC FOR DURAGESIC   50 MCG / HR  GENERIC [Suspect]
     Indication: INTERVERTEBRAL DISC PROTRUSION
     Dosage: 50MCG   72 HRS  TRANSDERMA
     Route: 062
     Dates: start: 20050306, end: 20050407
  2. GENERIC FOR DURAGESIC   50 MCG / HR  GENERIC [Suspect]
     Indication: SHOULDER PAIN
     Dosage: 50MCG   72 HRS  TRANSDERMA
     Route: 062
     Dates: start: 20050306, end: 20050407
  3. SOMA [Concomitant]
  4. NEURONTIN [Concomitant]
  5. AMBIEN [Concomitant]

REACTIONS (7)
  - COGNITIVE DISORDER [None]
  - DRUG WITHDRAWAL SYNDROME [None]
  - HOMICIDAL IDEATION [None]
  - INSOMNIA [None]
  - IRRITABILITY [None]
  - PHARMACEUTICAL PRODUCT COMPLAINT [None]
  - SUICIDAL IDEATION [None]
